FAERS Safety Report 20739761 (Version 2)
Quarter: 2022Q2

REPORT INFORMATION
  Report Type: Spontaneous
  Country: US (occurrence: US)
  Receive Date: 20220422
  Receipt Date: 20220422
  Transmission Date: 20220720
  Serious: No
  Sender: FDA-Public Use
  Company Number: US-PFIZER INC-202200221187

PATIENT
  Age: 74 Year
  Sex: Female

DRUGS (2)
  1. VORICONAZOLE [Suspect]
     Active Substance: VORICONAZOLE
     Dosage: 10 ML, 2X/DAY (TAKE 10ML( 400MG) BY MOUTH 2 ( TWO) TIMES A DAY, QUANTITY 600)
     Route: 048
  2. VORICONAZOLE [Suspect]
     Active Substance: VORICONAZOLE
     Dosage: 200 MG, 2X/DAY (TAKE 2 TABLETS BY MOUTH EVERY 12 HOURS, QTY 120)
     Route: 048

REACTIONS (3)
  - Off label use [Unknown]
  - Intentional product misuse [Unknown]
  - Infection [Unknown]
